FAERS Safety Report 7606547-9 (Version None)
Quarter: 2011Q3

REPORT INFORMATION
  Report Type: 
  Country: None (occurrence: None)
  Receive Date: 20110713
  Receipt Date: 20110630
  Transmission Date: 20111222
  Serious: Yes (Other)
  Sender: FDA-Public Use
  Company Number: PHHY2011CA32057

PATIENT

DRUGS (1)
  1. ALISKIREN [Suspect]
     Dosage: 150 MG, DAILY
     Route: 048
     Dates: start: 20101010, end: 20110328

REACTIONS (3)
  - BLOOD CREATININE INCREASED [None]
  - GLOMERULAR FILTRATION RATE DECREASED [None]
  - RENAL ARTERY STENOSIS [None]
